FAERS Safety Report 7528003-9 (Version None)
Quarter: 2011Q2

REPORT INFORMATION
  Report Type: 
  Country: None (occurrence: None)
  Receive Date: 20110607
  Receipt Date: 20040225
  Transmission Date: 20111010
  Serious: Yes (Death, Other)
  Sender: FDA-Public Use
  Company Number: PHNR2004AU00699

PATIENT
  Sex: Male

DRUGS (2)
  1. CLOZARIL [Suspect]
     Indication: SCHIZOPHRENIA
     Dosage: 300 MG, UNK
     Dates: start: 20000309
  2. THALIDOMIDE [Concomitant]
     Indication: MULTIPLE MYELOMA

REACTIONS (3)
  - PNEUMONIA [None]
  - MULTIPLE MYELOMA [None]
  - PYREXIA [None]
